FAERS Safety Report 10024537 (Version 2)
Quarter: 2014Q1

REPORT INFORMATION
  Report Type: Spontaneous
  Country: US (occurrence: US)
  Receive Date: 20140320
  Receipt Date: 20140320
  Transmission Date: 20141002
  Serious: Yes (Hospitalization, Other)
  Sender: FDA-Public Use
  Company Number: US-RB-063422-14

PATIENT
  Age: 0 None
  Sex: Male

DRUGS (15)
  1. SUBOXONE TABLET [Suspect]
     Indication: DRUG DEPENDENCE
     Route: 064
     Dates: start: 201203, end: 201208
  2. SUBOXONE FILM [Suspect]
     Indication: DRUG DEPENDENCE
     Dosage: SUBOXONE FILM;
     Route: 064
     Dates: start: 201208, end: 201211
  3. SUBOXONE FILM [Suspect]
     Dosage: SUBOXONE FILM; BREAST FED FOR 5 DAYS ONLY
     Route: 063
     Dates: start: 201212, end: 201212
  4. GENERIC BUPRENORPHINE [Suspect]
     Route: 064
     Dates: start: 201311, end: 201312
  5. GENERIC BUPRENORPHINE [Suspect]
     Indication: DRUG DEPENDENCE
     Dosage: BREAST FED FOR 5 DAYS ONLY
     Route: 063
     Dates: start: 201212, end: 201212
  6. MELATONIN [Concomitant]
     Indication: INSOMNIA
     Dosage: DOSING DETAILS UNKNOWN
     Route: 064
     Dates: start: 2012, end: 20121201
  7. MELATONIN [Concomitant]
     Dosage: DOSING DETAILS UNKNOWN
     Route: 063
     Dates: start: 20121201, end: 20121205
  8. TYLENOL [Concomitant]
     Indication: PAIN
     Dosage: DOSING DETAILS UNKNOWN
     Route: 064
     Dates: start: 2012, end: 2012
  9. TYLENOL [Concomitant]
     Dosage: DOSING DETAILS UNKNOWN
     Route: 063
     Dates: start: 2012, end: 2012
  10. TUMS [Concomitant]
     Dosage: DOSING DETAILS UNKNOWN
     Route: 064
     Dates: start: 2012, end: 20121201
  11. TUMS [Concomitant]
     Indication: DYSPEPSIA
     Dosage: DOSING DETAILS UNKNOWN; BREAST FED 5 DAYS ONLY
     Route: 063
     Dates: start: 20121201, end: 20121205
  12. PRENATAL VITAMINS [Concomitant]
     Dosage: DOSING DETAILS UNKNOWN
     Route: 064
     Dates: start: 2012, end: 20121201
  13. PRENATAL VITAMINS [Concomitant]
     Indication: PRODUCT USED FOR UNKNOWN INDICATION
     Dosage: DOSING DETAILS UNKNOWN; BREAST FED 5 DAYS ONLY
     Route: 063
     Dates: start: 20121201, end: 20121205
  14. NICOTINE [Concomitant]
     Dosage: 7 CIGARETTES DAILY
     Route: 064
     Dates: start: 201203, end: 20121201
  15. NICOTINE [Concomitant]
     Indication: PRODUCT USED FOR UNKNOWN INDICATION
     Dosage: 7 CIGARETTES DAILY
     Route: 063
     Dates: start: 20121201, end: 20121205

REACTIONS (5)
  - Foetal exposure during pregnancy [Recovered/Resolved]
  - Drug withdrawal syndrome neonatal [Recovered/Resolved]
  - Exposure during breast feeding [Recovered/Resolved]
  - Head banging [Not Recovered/Not Resolved]
  - Speech disorder developmental [Not Recovered/Not Resolved]
